FAERS Safety Report 13601427 (Version 1)
Quarter: 2017Q2

REPORT INFORMATION
  Report Type: Spontaneous
  Country: US (occurrence: US)
  Receive Date: 20170601
  Receipt Date: 20170601
  Transmission Date: 20170830
  Serious: No
  Sender: FDA-Public Use
  Company Number: US-PFIZER INC-2017238312

PATIENT
  Age: 47 Year
  Sex: Male
  Weight: 88 kg

DRUGS (7)
  1. DEXAMETHASONE. [Concomitant]
     Active Substance: DEXAMETHASONE
     Indication: PROPHYLAXIS OF NAUSEA AND VOMITING
     Dosage: 4 MG, SINGLE
     Route: 042
     Dates: start: 20170518, end: 20170518
  2. FENTANYL. [Concomitant]
     Active Substance: FENTANYL
     Indication: ANAESTHESIA
     Dosage: 20MCG INTRATHECALLY ONE TIME ONLY
     Route: 037
     Dates: start: 20170518, end: 20170518
  3. ONDANSETRON [Concomitant]
     Active Substance: ONDANSETRON
     Indication: PROPHYLAXIS OF NAUSEA AND VOMITING
     Dosage: 4MG IV ONE TIME ONLY
     Route: 042
     Dates: start: 20170518, end: 20170518
  4. MARCAINE [Suspect]
     Active Substance: BUPIVACAINE HYDROCHLORIDE
     Indication: ANAESTHESIA
     Dosage: 1.6 ML, UNK
     Route: 037
     Dates: start: 20170518
  5. KETAMINE [Concomitant]
     Active Substance: KETAMINE
     Indication: ANAESTHESIA
     Dosage: 30MG IV FOLLOWED BY 20MG IV 20 MINUTES LATER
     Route: 042
     Dates: start: 20170518, end: 20170518
  6. CEFAZOLIN [Concomitant]
     Active Substance: CEFAZOLIN
     Dosage: 2 G, 3X/DAY
     Route: 042
     Dates: start: 20170518
  7. PROPOFOL. [Concomitant]
     Active Substance: PROPOFOL
     Indication: ANAESTHESIA
     Dosage: 180MG IV FUSION ONE TIME ONLY
     Route: 042
     Dates: start: 20170518, end: 20170518

REACTIONS (1)
  - Drug ineffective [Unknown]

NARRATIVE: CASE EVENT DATE: 20170518
